FAERS Safety Report 14738647 (Version 1)
Quarter: 2018Q2

REPORT INFORMATION
  Report Type: Spontaneous
  Country: FR (occurrence: FR)
  Receive Date: 20180409
  Receipt Date: 20180409
  Transmission Date: 20180711
  Serious: Yes (Other)
  Sender: FDA-Public Use
  Company Number: FR-BAUSCH-BL-2018-009846

PATIENT
  Sex: Female

DRUGS (2)
  1. TILDIEM [Suspect]
     Active Substance: DILTIAZEM HYDROCHLORIDE
     Indication: PRODUCT USED FOR UNKNOWN INDICATION
     Route: 065
  2. INSULIN [Concomitant]
     Active Substance: INSULIN NOS
     Indication: PRODUCT USED FOR UNKNOWN INDICATION
     Dosage: 10 IU DAILY UNTIL 20-30-40 OR 50 IU

REACTIONS (7)
  - Rash [Unknown]
  - Diabetes mellitus inadequate control [Not Recovered/Not Resolved]
  - Arrhythmia [Unknown]
  - Headache [Unknown]
  - Malaise [Unknown]
  - Blood pressure increased [Unknown]
  - Hot flush [Unknown]
